FAERS Safety Report 9632930 (Version 1)
Quarter: 2013Q4

REPORT INFORMATION
  Report Type: Spontaneous
  Country: US (occurrence: US)
  Receive Date: 20131018
  Receipt Date: 20131018
  Transmission Date: 20140711
  Serious: Yes (Other)
  Sender: FDA-Public Use
  Company Number: US-ASTRAZENECA-2013SE52360

PATIENT
  Age: 62 Year
  Sex: Female
  Weight: 90.7 kg

DRUGS (6)
  1. NEXIUM [Suspect]
     Indication: GASTROOESOPHAGEAL REFLUX DISEASE
     Route: 048
     Dates: start: 2008
  2. OMEPRAZOLE [Suspect]
     Route: 048
  3. LEXAPRO [Concomitant]
     Indication: BLOOD PRESSURE ABNORMAL
  4. LORENSAPRO [Concomitant]
     Indication: ANXIETY
  5. PAIN MEDICATION [Concomitant]
     Dosage: PRN
  6. PROTONIX [Concomitant]

REACTIONS (14)
  - Spinal column injury [Unknown]
  - Eating disorder [Unknown]
  - Road traffic accident [Unknown]
  - Hypertension [Unknown]
  - Weight increased [Unknown]
  - Anxiety [Unknown]
  - Dyspepsia [Unknown]
  - Abdominal pain upper [Unknown]
  - Abdominal discomfort [Unknown]
  - Nausea [Unknown]
  - Depression [Unknown]
  - Intentional drug misuse [Unknown]
  - Drug dose omission [Unknown]
  - Drug ineffective [Unknown]
